FAERS Safety Report 25834927 (Version 1)
Quarter: 2025Q3

REPORT INFORMATION
  Report Type: Spontaneous
  Country: NZ (occurrence: NZ)
  Receive Date: 20250923
  Receipt Date: 20250923
  Transmission Date: 20251020
  Serious: Yes (Death, Other)
  Sender: RIGEL PHARMACEUTICALS
  Company Number: NZ-ROCHE-10000390192

PATIENT
  Age: 74 Year
  Sex: Female

DRUGS (1)
  1. GAVRETO [Suspect]
     Active Substance: PRALSETINIB
     Indication: Product used for unknown indication
     Route: 050

REACTIONS (3)
  - Neoplasm malignant [Fatal]
  - Metastases to meninges [Fatal]
  - Blindness [Unknown]
